FAERS Safety Report 24783422 (Version 1)
Quarter: 2024Q4

REPORT INFORMATION
  Report Type: Spontaneous
  Country: ES (occurrence: ES)
  Receive Date: 20241227
  Receipt Date: 20241227
  Transmission Date: 20250114
  Serious: Yes (Death)
  Sender: MYLAN
  Company Number: ES-MYLANLABS-2024M1115722

PATIENT
  Age: 82 Year
  Sex: Male

DRUGS (5)
  1. PEMETREXED [Suspect]
     Active Substance: PEMETREXED
     Indication: Sarcomatoid mesothelioma
     Dosage: UNK, CYCLE {44 CYCLES}
     Route: 065
  2. GEMCITABINE [Suspect]
     Active Substance: GEMCITABINE
     Indication: Sarcomatoid mesothelioma
     Dosage: UNK, CYCLE {CYCLES}
     Route: 065
  3. CARBOPLATIN [Suspect]
     Active Substance: CARBOPLATIN
     Indication: Sarcomatoid mesothelioma
     Dosage: UNK, CYCLE {44 CYCLES}
     Route: 065
  4. CARBOPLATIN [Suspect]
     Active Substance: CARBOPLATIN
     Dosage: UNK, CYCLE {6 CYCLES}
     Route: 065
  5. VINORELBINE [Suspect]
     Active Substance: VINORELBINE TARTRATE
     Indication: Sarcomatoid mesothelioma
     Dosage: UNK
     Route: 048

REACTIONS (2)
  - Disease progression [Fatal]
  - Drug ineffective [Fatal]
